FAERS Safety Report 5762401-9 (Version None)
Quarter: 2008Q2

REPORT INFORMATION
  Report Type: 
  Country: None (occurrence: None)
  Receive Date: 20080609
  Receipt Date: 20080528
  Transmission Date: 20081010
  Serious: Yes (Hospitalization, Other)
  Sender: FDA-Public Use
  Company Number: ES-AMGEN-UK279641

PATIENT

DRUGS (1)
  1. NEUPOGEN [Suspect]
     Indication: BLOOD STEM CELL HARVEST
     Route: 065
     Dates: start: 19980101

REACTIONS (15)
  - BONE PAIN [None]
  - CHOROID MELANOMA [None]
  - FATIGUE [None]
  - GOUT [None]
  - HAEMOGLOBIN DECREASED [None]
  - HEADACHE [None]
  - HYPERHIDROSIS [None]
  - INSOMNIA [None]
  - LUNG NEOPLASM MALIGNANT [None]
  - NAUSEA [None]
  - PNEUMOTHORAX [None]
  - PYREXIA [None]
  - SPLENIC RUPTURE [None]
  - THYROID CANCER [None]
  - WHITE BLOOD CELL COUNT DECREASED [None]
